FAERS Safety Report 9270212 (Version 2)
Quarter: 2013Q2

REPORT INFORMATION
  Report Type: Spontaneous
  Country: FR (occurrence: FR)
  Receive Date: 20130503
  Receipt Date: 20130614
  Transmission Date: 20140414
  Serious: Yes (Other)
  Sender: FDA-Public Use
  Company Number: FR-GLAXOSMITHKLINE-B0887983A

PATIENT
  Age: 67 Year
  Sex: Female
  Weight: 70 kg

DRUGS (4)
  1. REVOLADE [Suspect]
     Indication: AUTOIMMUNE THROMBOCYTOPENIA
     Route: 048
     Dates: start: 20130209, end: 20130308
  2. TRANSFUSION [Concomitant]
     Indication: AUTOIMMUNE THROMBOCYTOPENIA
  3. IMMUNOGLOBULINS [Concomitant]
     Indication: AUTOIMMUNE THROMBOCYTOPENIA
     Route: 042
     Dates: end: 201212
  4. DEXAMETHASONE [Concomitant]
     Indication: IDIOPATHIC THROMBOCYTOPENIC PURPURA
     Dates: end: 201212

REACTIONS (1)
  - Thrombophlebitis [Recovered/Resolved]
